FAERS Safety Report 5671800-5 (Version None)
Quarter: 2008Q1

REPORT INFORMATION
  Report Type: 
  Country: None (occurrence: None)
  Receive Date: 20080314
  Receipt Date: 20080304
  Transmission Date: 20080703
  Serious: Yes (Hospitalization, Other)
  Sender: FDA-Public Use
  Company Number: 2008BI003128

PATIENT
  Age: 51 Year
  Sex: Female

DRUGS (16)
  1. AVONEX [Suspect]
     Indication: MULTIPLE SCLEROSIS
     Dosage: 30 UG;QW;IM
     Route: 030
     Dates: start: 19990217
  2. SYNTHROID [Concomitant]
  3. DETROL [Concomitant]
  4. CRYSELLE [Concomitant]
  5. LEVSIN [Concomitant]
  6. ZANAFLEX [Concomitant]
  7. DUONEB [Concomitant]
  8. ENALAPRIL MALEATE [Concomitant]
  9. NORVASC [Concomitant]
  10. ZOCOR [Concomitant]
  11. TRANDATE [Concomitant]
  12. ZOLOFT [Concomitant]
  13. POTASSIUM CHLORIDE [Concomitant]
  14. LASIX [Concomitant]
  15. PROTONIX [Concomitant]
  16. AMBIEN [Concomitant]

REACTIONS (7)
  - ACUTE RESPIRATORY DISTRESS SYNDROME [None]
  - DECUBITUS ULCER [None]
  - DILATATION VENTRICULAR [None]
  - OEDEMA PERIPHERAL [None]
  - PNEUMONIA STAPHYLOCOCCAL [None]
  - PSEUDOMONAS BRONCHITIS [None]
  - PULMONARY FIBROSIS [None]
